FAERS Safety Report 9409660 (Version 2)
Quarter: 2013Q3

REPORT INFORMATION
  Report Type: Spontaneous
  Country: US (occurrence: US)
  Receive Date: 20130719
  Receipt Date: 20130723
  Transmission Date: 20140515
  Serious: Yes (Other)
  Sender: FDA-Public Use
  Company Number: US-PFIZER INC-2013210245

PATIENT
  Age: 57 Year
  Sex: Male
  Weight: 68.03 kg

DRUGS (7)
  1. LYRICA [Suspect]
     Dosage: 50 MG, 3X/DAY
     Route: 048
     Dates: start: 20130624
  2. LYRICA [Suspect]
     Dosage: 50 MG, AS NEEDED
     Route: 048
     Dates: start: 2013
  3. LYRICA [Suspect]
     Dosage: 50 MG, UNK
     Route: 048
     Dates: start: 2013
  4. GABAPENTIN [Suspect]
     Dosage: UNK
     Dates: end: 2013
  5. MORPHINE SULFATE [Suspect]
     Dosage: UNK
     Dates: end: 2013
  6. FLOMAX [Concomitant]
     Dosage: 4 MG, UNK
  7. OXYCODONE [Concomitant]
     Indication: PAIN
     Dosage: UNK

REACTIONS (7)
  - Intentional drug misuse [Unknown]
  - Diplopia [Unknown]
  - Activities of daily living impaired [Unknown]
  - Vision blurred [Unknown]
  - Impaired driving ability [Unknown]
  - Weight decreased [Unknown]
  - Dizziness [Unknown]
